FAERS Safety Report 20657078 (Version 1)
Quarter: 2022Q1

REPORT INFORMATION
  Report Type: Spontaneous
  Country: PY (occurrence: None)
  Receive Date: 20220331
  Receipt Date: 20220331
  Transmission Date: 20220423
  Serious: Yes (Other)
  Sender: FDA-Public Use
  Company Number: PY-ROCHE-3063084

PATIENT
  Age: 31 Year
  Sex: Male
  Weight: 90 kg

DRUGS (2)
  1. TECENTRIQ [Suspect]
     Active Substance: ATEZOLIZUMAB
     Indication: Hepatocellular carcinoma
     Dosage: FOR 6 MONTHS (8 CYCLES)
     Route: 041
     Dates: start: 20210804
  2. AVASTIN [Suspect]
     Active Substance: BEVACIZUMAB
     Indication: Hepatocellular carcinoma
     Dosage: FOR 6 MONTHS (8 CYCLES)
     Route: 042
     Dates: start: 20210804

REACTIONS (1)
  - Hepatic cancer [Unknown]
